FAERS Safety Report 20045134 (Version 1)
Quarter: 2021Q4

REPORT INFORMATION
  Report Type: Spontaneous
  Country: GB (occurrence: GB)
  Receive Date: 20211108
  Receipt Date: 20211108
  Transmission Date: 20220303
  Serious: Yes (Other)
  Sender: FDA-Public Use
  Company Number: None

PATIENT
  Age: 55 Year
  Sex: Female
  Weight: 81 kg

DRUGS (3)
  1. ATORVASTATIN [Suspect]
     Active Substance: ATORVASTATIN
     Indication: Blood cholesterol increased
     Dosage: 20MG
     Route: 048
     Dates: start: 20210224, end: 20210317
  2. ATORVASTATIN [Suspect]
     Active Substance: ATORVASTATIN
     Indication: Ill-defined disorder
  3. PROPRANOLOL [Concomitant]
     Active Substance: PROPRANOLOL HYDROCHLORIDE
     Indication: Ill-defined disorder

REACTIONS (1)
  - Photosensitivity reaction [Unknown]

NARRATIVE: CASE EVENT DATE: 20210306
